FAERS Safety Report 4852770-6 (Version None)
Quarter: 2005Q4

REPORT INFORMATION
  Report Type: 
  Country: None (occurrence: None)
  Receive Date: 20051125
  Receipt Date: 20041104
  Transmission Date: 20060501
  Serious: Yes (Other)
  Sender: FDA-Public Use
  Company Number: HQWYE090716SEP04

PATIENT
  Age: 42 Year
  Sex: Male
  Weight: 83.99 kg

DRUGS (3)
  1. ZOSYN [Suspect]
     Indication: BACTERIAL INFECTION
     Dosage: 3.375 G 1X PER 8 HR, INTRAVENOUS
     Route: 042
     Dates: start: 20040911, end: 20040915
  2. LACTATED RINGER'S [Suspect]
  3. VANCOMYCIN [Suspect]

REACTIONS (3)
  - DRUG ADMINISTRATION ERROR [None]
  - DRUG CHEMICAL INCOMPATIBILITY [None]
  - INFUSION SITE PAIN [None]
